FAERS Safety Report 6237549-5 (Version None)
Quarter: 2009Q2

REPORT INFORMATION
  Report Type: 
  Country: None (occurrence: None)
  Receive Date: 20090616
  Receipt Date: 20090604
  Transmission Date: 20091009
  Serious: Yes (Death, Hospitalization)
  Sender: FDA-Public Use
  Company Number: 2008AL009042

PATIENT
  Age: 49 Year
  Sex: Male

DRUGS (3)
  1. DIGOXIN [Suspect]
     Dosage: PO
     Route: 048
     Dates: start: 20060301
  2. LOPRESSOR [Concomitant]
  3. AMIODARONE [Concomitant]

REACTIONS (15)
  - ARRHYTHMIA [None]
  - CARDIAC ARREST [None]
  - COMA [None]
  - CONFUSIONAL STATE [None]
  - CYANOSIS [None]
  - DISORIENTATION [None]
  - DIZZINESS [None]
  - DYSURIA [None]
  - FATIGUE [None]
  - HYPOTENSION [None]
  - LETHARGY [None]
  - NAUSEA [None]
  - SOMNOLENCE [None]
  - VENTRICULAR FIBRILLATION [None]
  - VOMITING [None]
